FAERS Safety Report 13634036 (Version 1)
Quarter: 2017Q2

REPORT INFORMATION
  Report Type: Spontaneous
  Country: US (occurrence: US)
  Receive Date: 20170531
  Receipt Date: 20170531
  Transmission Date: 20170830
  Serious: No
  Sender: FDA-Public Use
  Company Number: US-ASTELLAS-1598897

PATIENT
  Sex: Female

DRUGS (6)
  1. TARCEVA [Suspect]
     Active Substance: ERLOTINIB HYDROCHLORIDE
     Indication: LUNG NEOPLASM MALIGNANT
     Route: 048
     Dates: start: 20150504
  2. BACTRIM DS [Concomitant]
     Active Substance: SULFAMETHOXAZOLE\TRIMETHOPRIM
  3. DUONEB [Concomitant]
     Active Substance: ALBUTEROL SULFATE\IPRATROPIUM BROMIDE
  4. RANITIDINE. [Concomitant]
     Active Substance: RANITIDINE
  5. CLINDAMYCIN. [Concomitant]
     Active Substance: CLINDAMYCIN
  6. ACETYLCYSTEINE. [Concomitant]
     Active Substance: ACETYLCYSTEINE

REACTIONS (9)
  - Contusion [Unknown]
  - Liver function test increased [Unknown]
  - Oesophageal disorder [Unknown]
  - Onychoclasis [Unknown]
  - Bone lesion [Unknown]
  - Skin lesion [Unknown]
  - Acne [Unknown]
  - Diarrhoea [Unknown]
  - Rash [Unknown]
